FAERS Safety Report 19197944 (Version 1)
Quarter: 2021Q2

REPORT INFORMATION
  Report Type: Spontaneous
  Country: CH (occurrence: CH)
  Receive Date: 20210430
  Receipt Date: 20210430
  Transmission Date: 20210717
  Serious: Yes (Death, Other)
  Sender: FDA-Public Use
  Company Number: CH-JAZZ-2021-CH-007563

PATIENT
  Age: 48 Year
  Sex: Male

DRUGS (1)
  1. DEFITELIO [Suspect]
     Active Substance: DEFIBROTIDE SODIUM
     Indication: VENOOCCLUSIVE DISEASE
     Dosage: UNKNOWN DOSE

REACTIONS (1)
  - Multiple organ dysfunction syndrome [Fatal]
